FAERS Safety Report 19731416 (Version 1)
Quarter: 2021Q3

REPORT INFORMATION
  Report Type: Spontaneous
  Country: FR (occurrence: FR)
  Receive Date: 20210820
  Receipt Date: 20210820
  Transmission Date: 20211014
  Serious: Yes (Other)
  Sender: FDA-Public Use
  Company Number: FR-ASTRAZENECA-2021A680520

PATIENT
  Age: 59 Year
  Sex: Female

DRUGS (3)
  1. XEROQUEL [Suspect]
     Active Substance: QUETIAPINE FUMARATE
     Route: 048
     Dates: start: 202104
  2. LOXAPAC [Suspect]
     Active Substance: LOXAPINE
     Route: 048
     Dates: start: 202104
  3. SERESTA [Suspect]
     Active Substance: OXAZEPAM
     Route: 048
     Dates: start: 202104

REACTIONS (1)
  - Drug dependence [Recovering/Resolving]

NARRATIVE: CASE EVENT DATE: 202104
